FAERS Safety Report 22077417 (Version 2)
Quarter: 2023Q2

REPORT INFORMATION
  Report Type: Report from Study
  Country: AR (occurrence: AR)
  Receive Date: 20230309
  Receipt Date: 20230427
  Transmission Date: 20230721
  Serious: Yes (Other)
  Sender: FDA-Public Use
  Company Number: AR-002147023-NVSC2022AR212866

PATIENT
  Age: 56 Year
  Sex: Female

DRUGS (2)
  1. KISQALI [Suspect]
     Active Substance: RIBOCICLIB
     Indication: Breast cancer metastatic
     Dosage: 200 MG, TID
     Route: 048
     Dates: start: 20220129
  2. KISQALI [Suspect]
     Active Substance: RIBOCICLIB
     Dosage: 600 MG, QD
     Route: 048
     Dates: start: 20220129

REACTIONS (16)
  - Peripheral venous disease [Unknown]
  - Peripheral vascular disorder [Unknown]
  - Allergic cough [Unknown]
  - Limb injury [Unknown]
  - Pain in extremity [Unknown]
  - Drug hypersensitivity [Unknown]
  - Peripheral swelling [Unknown]
  - Dysphonia [Unknown]
  - Somnolence [Unknown]
  - Inflammation [Unknown]
  - Scratch [Unknown]
  - Headache [Unknown]
  - Fatigue [Unknown]
  - Pruritus [Unknown]
  - Asthenia [Unknown]
  - Inappropriate schedule of product administration [Unknown]

NARRATIVE: CASE EVENT DATE: 20220801
